FAERS Safety Report 11251491 (Version 1)
Quarter: 2015Q3

REPORT INFORMATION
  Report Type: Spontaneous
  Country: US (occurrence: US)
  Receive Date: 20150708
  Receipt Date: 20150708
  Transmission Date: 20151125
  Serious: Yes (Hospitalization, Other)
  Sender: FDA-Public Use
  Company Number: US-ELI_LILLY_AND_COMPANY-US201203007809

PATIENT

DRUGS (1)
  1. GEMZAR [Suspect]
     Active Substance: GEMCITABINE HYDROCHLORIDE
     Indication: HEPATIC CANCER
     Dosage: 800 MG, EVERY OTHER WEEK
     Dates: start: 201101, end: 201202

REACTIONS (4)
  - Vomiting [Unknown]
  - Malaise [Unknown]
  - Neoplasm progression [Unknown]
  - Pyrexia [Unknown]
